FAERS Safety Report 23776690 (Version 1)
Quarter: 2024Q2

REPORT INFORMATION
  Report Type: Spontaneous
  Country: DE (occurrence: DE)
  Receive Date: 20240424
  Receipt Date: 20240424
  Transmission Date: 20240716
  Serious: Yes (Other)
  Sender: FDA-Public Use
  Company Number: DE-JNJFOC-20240459876

PATIENT
  Age: 8 Year
  Sex: Male

DRUGS (2)
  1. SIMPONI [Suspect]
     Active Substance: GOLIMUMAB
     Indication: Rheumatic disorder
     Route: 058
     Dates: start: 202302
  2. METEX [Concomitant]
     Indication: Rheumatic disorder
     Route: 065

REACTIONS (3)
  - Pneumonia [Unknown]
  - Scarlet fever [Unknown]
  - Off label use [Unknown]
